FAERS Safety Report 9825222 (Version 1)
Quarter: 2014Q1

REPORT INFORMATION
  Report Type: Spontaneous
  Country: US (occurrence: None)
  Receive Date: 20140115
  Receipt Date: 20140115
  Transmission Date: 20141002
  Serious: Yes (Hospitalization)
  Sender: FDA-Public Use
  Company Number: None

PATIENT
  Age: 57 Year
  Sex: Male
  Weight: 77.3 kg

DRUGS (3)
  1. SUNITINIB MALATE [Suspect]
     Dates: end: 20131225
  2. ACETAMINOPHEN [Concomitant]
  3. VITAMIN D3 [Concomitant]

REACTIONS (2)
  - Hypoaesthesia [None]
  - Lacunar infarction [None]
